FAERS Safety Report 13531901 (Version 1)
Quarter: 2017Q2

REPORT INFORMATION
  Report Type: Spontaneous
  Country: DE (occurrence: DE)
  Receive Date: 20170510
  Receipt Date: 20170510
  Transmission Date: 20170830
  Serious: Yes (Life-Threatening, Other)
  Sender: FDA-Public Use
  Company Number: DE-GLENMARK PHARMACEUTICALS-2017GMK027389

PATIENT
  Age: 31 Year
  Sex: Female

DRUGS (4)
  1. LINEZOLID. [Concomitant]
     Active Substance: LINEZOLID
     Indication: ENCEPHALITIS BRAIN STEM
     Dosage: UNK, SECOND-LINE COMBINATION
     Route: 065
  2. RIFAMPICIN [Concomitant]
     Active Substance: RIFAMPIN
     Indication: ENCEPHALITIS BRAIN STEM
     Dosage: UNK, SECOND-LINE COMBINATION
     Route: 065
  3. SULFAMETHOXAZOLE/TRIMETHOPRIM [Suspect]
     Active Substance: SULFAMETHOXAZOLE\TRIMETHOPRIM
     Indication: ENCEPHALITIS BRAIN STEM
     Dosage: UNK
     Route: 065
  4. AMPICILLIN [Concomitant]
     Active Substance: AMPICILLIN
     Indication: ENCEPHALITIS BRAIN STEM
     Dosage: UNK, SECOND-LINE COMBINATION
     Route: 065

REACTIONS (2)
  - Acute respiratory distress syndrome [Recovered/Resolved with Sequelae]
  - Alveolitis [Recovered/Resolved with Sequelae]
